FAERS Safety Report 16478482 (Version 4)
Quarter: 2020Q1

REPORT INFORMATION
  Report Type: Spontaneous
  Country: US (occurrence: US)
  Receive Date: 20190626
  Receipt Date: 20200110
  Transmission Date: 20200409
  Serious: No
  Sender: FDA-Public Use
  Company Number: US-PFIZER INC-2019269876

PATIENT
  Age: 41 Year
  Sex: Female

DRUGS (3)
  1. IBRANCE [Suspect]
     Active Substance: PALBOCICLIB
     Dosage: 75 MG, UNK
     Dates: start: 20170901
  2. IBRANCE [Suspect]
     Active Substance: PALBOCICLIB
     Indication: BREAST CANCER METASTATIC
     Dosage: 125 MG, UNK
  3. LETROZOLE. [Concomitant]
     Active Substance: LETROZOLE
     Dosage: UNK

REACTIONS (12)
  - Mood altered [Unknown]
  - Fall [Unknown]
  - Bone lesion [Not Recovered/Not Resolved]
  - Alopecia [Unknown]
  - Gait disturbance [Unknown]
  - White blood cell count decreased [Unknown]
  - Malaise [Unknown]
  - Nasopharyngitis [Recovering/Resolving]
  - Weight decreased [Unknown]
  - Fatigue [Unknown]
  - Joint injury [Unknown]
  - Pain [Unknown]
